FAERS Safety Report 8314691-6 (Version None)
Quarter: 2012Q2

REPORT INFORMATION
  Report Type: 
  Country: None (occurrence: None)
  Receive Date: 20120426
  Receipt Date: 20120416
  Transmission Date: 20120825
  Serious: Yes (Hospitalization, Other)
  Sender: FDA-Public Use
  Company Number: US-ELI_LILLY_AND_COMPANY-US201204005505

PATIENT
  Age: 69 Year
  Sex: Female

DRUGS (5)
  1. CYMBALTA [Suspect]
     Dosage: 120 MG, QD
     Dates: start: 20100101, end: 20120415
  2. CYMBALTA [Suspect]
     Indication: FIBROMYALGIA
     Dosage: UNK, UNKNOWN
     Dates: start: 20080101
  3. LASIX                                   /USA/ [Concomitant]
  4. CYMBALTA [Suspect]
     Dosage: 60 MG, QD
     Dates: start: 20120416
  5. DIOVAN [Concomitant]

REACTIONS (13)
  - BALANCE DISORDER [None]
  - FACIAL PAIN [None]
  - ORAL INFECTION [None]
  - VTH NERVE INJURY [None]
  - STAPHYLOCOCCAL INFECTION [None]
  - GAIT DISTURBANCE [None]
  - ANXIETY [None]
  - HYPERTENSION [None]
  - MOUTH ULCERATION [None]
  - TONGUE ULCERATION [None]
  - TOE AMPUTATION [None]
  - BUNION OPERATION [None]
  - INCREASED UPPER AIRWAY SECRETION [None]
